FAERS Safety Report 8614523-2 (Version None)
Quarter: 2012Q3

REPORT INFORMATION
  Report Type: 
  Country: None (occurrence: None)
  Receive Date: 20120823
  Receipt Date: 20120820
  Transmission Date: 20120928
  Serious: Yes (Other)
  Sender: FDA-Public Use
  Company Number: PHHY2012DE054273

PATIENT
  Age: 61 Year
  Sex: Female
  Weight: 45 kg

DRUGS (3)
  1. BLOOD TRANSFUSION, AUXILIARY PRODUCTS [Concomitant]
     Dosage: EVERY 3 MONTH
     Route: 065
  2. EXJADE [Suspect]
     Indication: IRON OVERLOAD
     Dosage: 500 MG PLUS 3/4
     Route: 065
     Dates: start: 20100401
  3. EXJADE [Suspect]
     Indication: MYELODYSPLASTIC SYNDROME
     Dosage: 750 MG, DAILY

REACTIONS (4)
  - CROHN'S DISEASE [None]
  - BLOOD IRON INCREASED [None]
  - DIARRHOEA [None]
  - GASTROINTESTINAL INFLAMMATION [None]
